FAERS Safety Report 17078782 (Version 10)
Quarter: 2020Q3

REPORT INFORMATION
  Report Type: Spontaneous
  Country: GR (occurrence: GR)
  Receive Date: 20191127
  Receipt Date: 20200821
  Transmission Date: 20201102
  Serious: Yes (Life-Threatening, Hospitalization, Other)
  Sender: FDA-Public Use
  Company Number: GR-AUROBINDO-AUR-APL-2019-074685

PATIENT
  Age: 79 Year
  Sex: Male

DRUGS (9)
  1. FUROSEMIDE. [Suspect]
     Active Substance: FUROSEMIDE
     Indication: ACUTE MYOCARDIAL INFARCTION
     Dosage: UNK
     Route: 042
  2. FONDAPARINUX SODIUM. [Suspect]
     Active Substance: FONDAPARINUX SODIUM
     Indication: ACUTE MYOCARDIAL INFARCTION
     Dosage: 2.5 MILLIGRAM, ONCE A DAY, (MAINTENANCE THERAPY)
     Route: 058
  3. FONDAPARINUX [Suspect]
     Active Substance: FONDAPARINUX
     Indication: ACUTE CORONARY SYNDROME
     Dosage: 2.5 MILLIGRAM, ONCE A DAY
     Route: 065
  4. CLOPIDOGREL [Suspect]
     Active Substance: CLOPIDOGREL BISULFATE
     Indication: ACUTE MYOCARDIAL INFARCTION
     Dosage: UNK (LOADING DOSE)
     Route: 065
  5. ACETYLSALICYLIC ACID [Suspect]
     Active Substance: ASPIRIN
     Indication: ACUTE CORONARY SYNDROME
     Dosage: 100 MILLIGRAM, ONCE A DAY, (MAINTENANCE THERAPY)
     Route: 058
  6. FONDAPARINUX [Suspect]
     Active Substance: FONDAPARINUX
     Indication: ACUTE MYOCARDIAL INFARCTION
  7. FUROSEMIDE. [Suspect]
     Active Substance: FUROSEMIDE
     Indication: ACUTE CORONARY SYNDROME
  8. CLOPIDOGREL [Suspect]
     Active Substance: CLOPIDOGREL BISULFATE
     Indication: ACUTE CORONARY SYNDROME
     Dosage: 75 MILLIGRAM, ONCE A DAY, (MAINTENANCE THERAPY)
     Route: 058
  9. ACETYLSALICYLIC ACID [Suspect]
     Active Substance: ASPIRIN
     Indication: ACUTE MYOCARDIAL INFARCTION

REACTIONS (10)
  - Pericardial effusion [Recovered/Resolved]
  - Cardiac arrest [Recovered/Resolved]
  - Pericardial haemorrhage [Recovered/Resolved]
  - Pericardial mass [Recovered/Resolved]
  - Thrombosis [Recovered/Resolved]
  - Cardiac tamponade [Recovered/Resolved]
  - Blood pressure decreased [Recovered/Resolved]
  - Labelled drug-drug interaction medication error [Unknown]
  - Anuria [Recovered/Resolved]
  - Condition aggravated [Recovered/Resolved]
